FAERS Safety Report 9100818 (Version 2)
Quarter: 2013Q1

REPORT INFORMATION
  Report Type: Spontaneous
  Country: HU (occurrence: HU)
  Receive Date: 20130215
  Receipt Date: 20130225
  Transmission Date: 20140127
  Serious: Yes (Death, Hospitalization)
  Sender: FDA-Public Use
  Company Number: HU-BAYER-2013-018810

PATIENT
  Age: 45 Year
  Sex: Female

DRUGS (6)
  1. BETAFERON [Suspect]
     Indication: SECONDARY PROGRESSIVE MULTIPLE SCLEROSIS
     Dosage: .25 MG, QOD
     Route: 058
  2. NOOTROPIL [Concomitant]
  3. TISASEN [Concomitant]
  4. CLEXANE [Concomitant]
     Dosage: INJECTION
  5. NUTRITIONAL SUPPLEMENT [Concomitant]
  6. NEUROTOP [Concomitant]
     Indication: EPILEPSY
     Dosage: UNK
     Dates: start: 201210

REACTIONS (1)
  - Pneumonia [Fatal]
